FAERS Safety Report 8016847-9 (Version None)
Quarter: 2012Q1

REPORT INFORMATION
  Report Type: 
  Country: None (occurrence: None)
  Receive Date: 20120102
  Receipt Date: 20111219
  Transmission Date: 20120608
  Serious: Yes (Other)
  Sender: FDA-Public Use
  Company Number: PHHY2011US68497

PATIENT
  Age: 62 Year
  Sex: Female

DRUGS (2)
  1. ANTIHYPERTENSIVE DRUGS [Concomitant]
  2. FEMARA [Suspect]
     Indication: BREAST CANCER METASTATIC
     Dosage: 2.5 MG, QD
     Route: 048
     Dates: end: 20110701

REACTIONS (1)
  - DEMYELINATING POLYNEUROPATHY [None]
